FAERS Safety Report 19701861 (Version 4)
Quarter: 2022Q1

REPORT INFORMATION
  Report Type: Other
  Country: US (occurrence: US)
  Receive Date: 20210813
  Receipt Date: 20220302
  Transmission Date: 20220424
  Serious: Yes (Hospitalization, Other)
  Sender: FDA-Public Use
  Company Number: US-COVIS PHARMA GMBH-2021COV23637

PATIENT
  Age: 0 Year
  Sex: Female
  Weight: 2.69 kg

DRUGS (1)
  1. MAKENA [Suspect]
     Active Substance: HYDROXYPROGESTERONE CAPROATE
     Indication: Foetal exposure during pregnancy
     Route: 064
     Dates: start: 20210319, end: 20210701

REACTIONS (1)
  - Premature baby [Unknown]

NARRATIVE: CASE EVENT DATE: 20210707
